FAERS Safety Report 7772547-1 (Version None)
Quarter: 2011Q3

REPORT INFORMATION
  Report Type: 
  Country: None (occurrence: None)
  Receive Date: 20110922
  Receipt Date: 20101110
  Transmission Date: 20111222
  Serious: No
  Sender: FDA-Public Use
  Company Number: US-ASTRAZENECA-2010SE53622

PATIENT
  Age: 52 Year
  Sex: Female

DRUGS (4)
  1. SEROQUEL [Suspect]
     Route: 048
     Dates: end: 20100701
  2. SEROQUEL [Suspect]
     Route: 048
     Dates: start: 20100701
  3. SEROQUEL [Suspect]
     Route: 048
     Dates: start: 20100701
  4. SEROQUEL [Suspect]
     Route: 048
     Dates: start: 20101013

REACTIONS (7)
  - INSOMNIA [None]
  - MEMORY IMPAIRMENT [None]
  - DIZZINESS [None]
  - DISTURBANCE IN ATTENTION [None]
  - DRUG DOSE OMISSION [None]
  - NAUSEA [None]
  - MALAISE [None]
